FAERS Safety Report 13660664 (Version 1)
Quarter: 2017Q2

REPORT INFORMATION
  Report Type: Spontaneous
  Country: US (occurrence: US)
  Receive Date: 20170616
  Receipt Date: 20170616
  Transmission Date: 20170830
  Serious: Yes (Death, Hospitalization)
  Sender: FDA-Public Use
  Company Number: US-HLSUS-2017-US-000326

PATIENT
  Sex: Male

DRUGS (1)
  1. CLOZARIL [Suspect]
     Active Substance: CLOZAPINE
     Dosage: 500 MG

REACTIONS (3)
  - Adverse event [Unknown]
  - Completed suicide [Fatal]
  - Seizure [Unknown]

NARRATIVE: CASE EVENT DATE: 20170613
